FAERS Safety Report 5215202-4 (Version None)
Quarter: 2007Q1

REPORT INFORMATION
  Report Type: 
  Country: None (occurrence: None)
  Receive Date: 20061108
  Receipt Date: 20060822
  Transmission Date: 20070707
  Serious: Yes (Hospitalization)
  Sender: FDA-Public Use
  Company Number: US200608004538

PATIENT
  Sex: Female
  Weight: 126.1 kg

DRUGS (2)
  1. PROZAC [Suspect]
     Indication: DEPRESSION
     Dates: start: 20010101
  2. TOFRANIL [Concomitant]

REACTIONS (2)
  - DELUSION [None]
  - INSOMNIA [None]
